FAERS Safety Report 23699528 (Version 15)
Quarter: 2024Q2

REPORT INFORMATION
  Report Type: Spontaneous
  Country: US (occurrence: US)
  Receive Date: 20240402
  Receipt Date: 20240624
  Transmission Date: 20240715
  Serious: No
  Sender: FDA-Public Use
  Company Number: US-ELI_LILLY_AND_COMPANY-US202403014350

PATIENT
  Age: 92 Year
  Sex: Female
  Weight: 72.109 kg

DRUGS (31)
  1. TADALAFIL [Suspect]
     Active Substance: TADALAFIL
     Indication: Pulmonary arterial hypertension
     Dosage: 20 MG, UNKNOWN
     Route: 065
  2. TADALAFIL [Suspect]
     Active Substance: TADALAFIL
     Dosage: 40 MG, UNKNOWN
     Route: 065
  3. TADALAFIL [Suspect]
     Active Substance: TADALAFIL
     Dosage: 20 MG, UNKNOWN
     Route: 065
  4. TADALAFIL [Suspect]
     Active Substance: TADALAFIL
     Dosage: 40 MG, UNKNOWN
     Route: 065
     Dates: start: 2023
  5. TADALAFIL [Suspect]
     Active Substance: TADALAFIL
     Dosage: 20 MG, UNKNOWN
     Route: 065
     Dates: start: 2023
  6. TYVASO DPI [Suspect]
     Active Substance: TREPROSTINIL
     Indication: Pulmonary arterial hypertension
     Dosage: QID (1 BREATH)
     Route: 055
     Dates: start: 20240229
  7. TYVASO DPI [Suspect]
     Active Substance: TREPROSTINIL
     Dosage: 0.6MG/ML, QID (4 BREATHS)
     Route: 055
     Dates: start: 20240229
  8. TYVASO DPI [Suspect]
     Active Substance: TREPROSTINIL
     Dosage: 0.6MG/ML, QID (5 BREATHS)
     Route: 055
     Dates: start: 20240229
  9. TYVASO DPI [Suspect]
     Active Substance: TREPROSTINIL
     Dosage: 0.6MG/ML, QID (6 BREATHS)
     Route: 055
     Dates: start: 20240229
  10. TYVASO DPI [Suspect]
     Active Substance: TREPROSTINIL
     Dosage: 0.6MG/ML, QID (7 BREATHS)
     Route: 055
     Dates: start: 20240229
  11. TYVASO DPI [Suspect]
     Active Substance: TREPROSTINIL
     Dosage: 8 BREATHS
     Route: 055
     Dates: start: 20240229
  12. TYVASO DPI [Suspect]
     Active Substance: TREPROSTINIL
     Dosage: 9 BREATHS, QID
     Route: 055
     Dates: start: 20240229, end: 20240508
  13. TYVASO DPI [Suspect]
     Active Substance: TREPROSTINIL
     Dosage: 9 PUFFS, DAILY
     Route: 055
  14. MACITENTAN [Suspect]
     Active Substance: MACITENTAN
     Indication: Pulmonary arterial hypertension
     Dosage: 10 MG, DAILY
     Route: 048
     Dates: start: 20231001
  15. ATORVASTATIN CALCIUM [Concomitant]
     Active Substance: ATORVASTATIN CALCIUM
     Indication: Product used for unknown indication
     Dosage: UNK UNK, UNKNOWN
     Route: 065
  16. LEVOTHYROXINE SODIUM [Concomitant]
     Active Substance: LEVOTHYROXINE SODIUM
     Indication: Product used for unknown indication
     Dosage: UNK, UNKNOWN
     Route: 065
  17. PYRIDOXINE [Concomitant]
     Active Substance: PYRIDOXINE
     Indication: Product used for unknown indication
     Dosage: UNK, UNKNOWN
     Route: 065
  18. VITAMIN B12 [Concomitant]
     Active Substance: CYANOCOBALAMIN
     Indication: Product used for unknown indication
     Dosage: UNK, UNKNOWN
     Route: 065
  19. TOPROL XL [Concomitant]
     Active Substance: METOPROLOL SUCCINATE
     Indication: Product used for unknown indication
     Dosage: UNK, UNKNOWN
     Route: 065
  20. ALBUTEROL SULFATE [Concomitant]
     Active Substance: ALBUTEROL SULFATE
     Indication: Product used for unknown indication
     Dosage: UNK, UNKNOWN
     Route: 065
  21. CLOPIDOGREL [Concomitant]
     Active Substance: CLOPIDOGREL BISULFATE
     Indication: Product used for unknown indication
     Dosage: UNK, UNKNOWN
     Route: 065
  22. OPSUMIT [Concomitant]
     Active Substance: MACITENTAN
     Indication: Product used for unknown indication
     Dosage: UNK, UNKNOWN
     Route: 065
  23. MAGNESIUM [Concomitant]
     Active Substance: MAGNESIUM
     Indication: Product used for unknown indication
     Dosage: UNK, UNKNOWN
     Route: 065
  24. ASPIRIN [Concomitant]
     Active Substance: ASPIRIN
     Indication: Product used for unknown indication
     Dosage: UNK, UNKNOWN
     Route: 065
  25. FOLIC ACID [Concomitant]
     Active Substance: FOLIC ACID
     Indication: Product used for unknown indication
     Dosage: UNK, UNKNOWN
     Route: 065
  26. OXYGEN [Concomitant]
     Active Substance: OXYGEN
     Indication: Product used for unknown indication
     Dosage: UNK, UNKNOWN
     Route: 065
  27. JANUVIA [Concomitant]
     Active Substance: SITAGLIPTIN PHOSPHATE
     Indication: Product used for unknown indication
     Dosage: UNK, UNKNOWN
     Route: 065
  28. SPIRONOLACTONE AND HYDROCHLOROTHIAZIDE [Concomitant]
     Active Substance: HYDROCHLOROTHIAZIDE\SPIRONOLACTONE
     Indication: Product used for unknown indication
     Dosage: UNK, UNKNOWN
     Route: 065
  29. TRIAMCINOLONE ACETONIDE [Concomitant]
     Active Substance: TRIAMCINOLONE ACETONIDE
     Indication: Product used for unknown indication
     Dosage: UNK, UNKNOWN
     Route: 065
  30. FLUAD QUAD [Concomitant]
     Indication: Product used for unknown indication
     Dosage: UNK UNK, UNKNOWN
     Route: 065
  31. PEPCID [Concomitant]
     Active Substance: FAMOTIDINE
     Indication: Product used for unknown indication
     Dosage: UNK UNK, UNKNOWN
     Route: 065

REACTIONS (23)
  - Blister [Recovering/Resolving]
  - Off label use [Unknown]
  - Throat irritation [Unknown]
  - Hypoacusis [Unknown]
  - Reading disorder [Unknown]
  - Dry skin [Unknown]
  - Skin disorder [Not Recovered/Not Resolved]
  - Scab [Recovered/Resolved]
  - Dehydration [Unknown]
  - Pruritus [Recovering/Resolving]
  - Cough [Not Recovered/Not Resolved]
  - Headache [Recovered/Resolved]
  - Fatigue [Unknown]
  - Dyspnoea [Not Recovered/Not Resolved]
  - Dyspepsia [Unknown]
  - Nausea [Unknown]
  - Hypotension [Unknown]
  - Head discomfort [Unknown]
  - Hypersensitivity [Recovering/Resolving]
  - Dizziness [Recovered/Resolved]
  - Rash [Recovering/Resolving]
  - Headache [Unknown]
  - Dizziness [Unknown]

NARRATIVE: CASE EVENT DATE: 20231001
